FAERS Safety Report 8094231-X (Version None)
Quarter: 2012Q1

REPORT INFORMATION
  Report Type: 
  Country: None (occurrence: None)
  Receive Date: 20120131
  Receipt Date: 20120120
  Transmission Date: 20120608
  Serious: Yes (Other)
  Sender: FDA-Public Use
  Company Number: US-JNJFOC-20120109792

PATIENT
  Sex: Male
  Weight: 97.52 kg

DRUGS (7)
  1. ANTIHISTAMINES [Concomitant]
  2. INFLIXIMAB, RECOMBINANT [Suspect]
     Dosage: 30 INFUSIONS AT THIS DOSE
     Route: 042
     Dates: start: 20071115, end: 20110622
  3. ANTIBIOTICS [Concomitant]
  4. INFLIXIMAB, RECOMBINANT [Suspect]
     Dosage: 10 INFUSIONS AT THIS DOSE
     Route: 042
     Dates: start: 20060711, end: 20071004
  5. ACETAMINOPHEN [Concomitant]
  6. PREDNISONE TAB [Concomitant]
  7. INFLIXIMAB, RECOMBINANT [Suspect]
     Indication: CROHN'S DISEASE
     Dosage: UNKNOWN AS THE PATIENT DID NOT HAVE ANY IN THE YEAR PRIOR TO TREAT BUT DID HAVE INFLIXIMAB IN 1999
     Route: 042
     Dates: end: 19990101

REACTIONS (1)
  - NEOPLASM MALIGNANT [None]
